FAERS Safety Report 23324615 (Version 2)
Quarter: 2024Q1

REPORT INFORMATION
  Report Type: Spontaneous
  Country: IN (occurrence: IN)
  Receive Date: 20231221
  Receipt Date: 20240102
  Transmission Date: 20240410
  Serious: Yes (Life-Threatening, Hospitalization, Disabling, Other)
  Sender: FDA-Public Use
  Company Number: None

PATIENT
  Age: 6 Decade
  Sex: Male

DRUGS (5)
  1. MYCOPHENOLATE MOFETIL [Suspect]
     Active Substance: MYCOPHENOLATE MOFETIL
     Indication: Immunosuppressant drug therapy
     Dosage: UNK
     Route: 065
  2. TACROLIMUS [Suspect]
     Active Substance: TACROLIMUS
     Indication: Immunosuppressant drug therapy
     Dosage: UNK
     Route: 065
  3. METHYLPREDNISOLONE [Suspect]
     Active Substance: METHYLPREDNISOLONE
     Indication: Immunosuppressant drug therapy
     Dosage: 250 MILLIGRAM
     Route: 065
  4. BASILIXIMAB [Suspect]
     Active Substance: BASILIXIMAB
     Indication: Immunosuppressant drug therapy
     Dosage: UNK
     Route: 065
  5. RITUXIMAB [Suspect]
     Active Substance: RITUXIMAB
     Indication: Immunosuppressant drug therapy
     Dosage: 200 MILLIGRAM (20 DAYS BEFORE TRANSPLANT)
     Route: 065

REACTIONS (10)
  - Optic perineuritis [Unknown]
  - Retinal detachment [Recovering/Resolving]
  - Vitreous haemorrhage [Recovering/Resolving]
  - Thrombocytopenia [Recovering/Resolving]
  - Bronchopulmonary aspergillosis [Recovering/Resolving]
  - Cellulitis orbital [Recovering/Resolving]
  - Cytomegalovirus chorioretinitis [Recovering/Resolving]
  - Pneumonia klebsiella [Recovering/Resolving]
  - Blindness unilateral [Unknown]
  - Leukopenia [Unknown]
